FAERS Safety Report 14618806 (Version 1)
Quarter: 2018Q1

REPORT INFORMATION
  Report Type: Spontaneous
  Country: US (occurrence: US)
  Receive Date: 20180309
  Receipt Date: 20180309
  Transmission Date: 20180509
  Serious: No
  Sender: FDA-Public Use
  Company Number: US-LPDUSPRD-20170160

PATIENT
  Age: 73 Year
  Sex: Female
  Weight: 65.8 kg

DRUGS (3)
  1. ESTRADIOL VALERATE INJECTION, USP (0870-05) [Suspect]
     Active Substance: ESTRADIOL VALERATE
     Dosage: 20 MG
     Route: 030
     Dates: start: 20170202, end: 20170202
  2. TRIAMTERENE. [Concomitant]
     Active Substance: TRIAMTERENE
  3. NIFEDIPINE. [Concomitant]
     Active Substance: NIFEDIPINE

REACTIONS (6)
  - Dry mouth [Not Recovered/Not Resolved]
  - Pollakiuria [Not Recovered/Not Resolved]
  - Headache [Not Recovered/Not Resolved]
  - Heart rate increased [Unknown]
  - Insomnia [Recovered/Resolved]
  - Abdominal pain [Unknown]

NARRATIVE: CASE EVENT DATE: 20170202
